FAERS Safety Report 19849849 (Version 1)
Quarter: 2021Q3

REPORT INFORMATION
  Report Type: Report from Study
  Country: US (occurrence: US)
  Receive Date: 20210917
  Receipt Date: 20210917
  Transmission Date: 20211014
  Serious: Yes (Other)
  Sender: FDA-Public Use
  Company Number: US-ALLERGAN-2132317US

PATIENT
  Sex: Female

DRUGS (1)
  1. BOTULINUM TOXIN TYPE A ? GENERAL (9060X) [Suspect]
     Active Substance: BOTULINUM TOXIN TYPE A
     Indication: MIGRAINE
     Dosage: UNK, SINGLE

REACTIONS (5)
  - Impaired quality of life [Unknown]
  - Gait disturbance [Unknown]
  - Accident [Recovered/Resolved with Sequelae]
  - Intellectual disability [Unknown]
  - Cerebrovascular accident [Unknown]
